FAERS Safety Report 10132754 (Version 1)
Quarter: 2014Q2

REPORT INFORMATION
  Report Type: Spontaneous
  Country: US (occurrence: US)
  Receive Date: 20140428
  Receipt Date: 20140428
  Transmission Date: 20141212
  Serious: Yes (Hospitalization)
  Sender: FDA-Public Use
  Company Number: US-SA-2014SA051682

PATIENT
  Age: 84 Year
  Sex: Female
  Weight: 55.7 kg

DRUGS (7)
  1. PLAVIX [Suspect]
     Indication: STENT PLACEMENT
     Route: 065
     Dates: start: 2011
  2. VITAMINS [Concomitant]
  3. FLUOROURACIL [Concomitant]
  4. LEUCOVORIN [Concomitant]
  5. AVASTIN [Concomitant]
  6. IMODIUM [Concomitant]
     Indication: DIARRHOEA
  7. LOMOTIL [Concomitant]

REACTIONS (3)
  - Colon cancer [Not Recovered/Not Resolved]
  - Weight decreased [Not Recovered/Not Resolved]
  - Diarrhoea [Not Recovered/Not Resolved]
